FAERS Safety Report 23232925 (Version 2)
Quarter: 2024Q4

REPORT INFORMATION
  Report Type: Spontaneous
  Country: ZA (occurrence: ZA)
  Receive Date: 20231128
  Receipt Date: 20241216
  Transmission Date: 20250114
  Serious: Yes (Other)
  Sender: AMGEN
  Company Number: ZA-PFIZER INC-202101503713

PATIENT
  Age: 44 Year
  Sex: Female
  Weight: 48 kg

DRUGS (1)
  1. ENBREL [Suspect]
     Active Substance: ETANERCEPT
     Indication: Rheumatoid arthritis
     Dosage: 50 MG, WEEKLY
     Route: 058
     Dates: end: 2024

REACTIONS (4)
  - Rectal abscess [Recovered/Resolved]
  - Colitis [Recovered/Resolved]
  - Disease progression [Unknown]
  - Treatment failure [Unknown]

NARRATIVE: CASE EVENT DATE: 20230701
